FAERS Safety Report 8886906 (Version 1)
Quarter: 2012Q4

REPORT INFORMATION
  Report Type: 
  Country: CH (occurrence: CH)
  Receive Date: 20121105
  Receipt Date: 20121105
  Transmission Date: 20130627
  Serious: Yes (Hospitalization, Disabling)
  Sender: FDA-Public Use
  Company Number: CH-PFIZER INC-2012267439

PATIENT
  Age: 74 Year
  Sex: Female

DRUGS (12)
  1. MORPHINE SULFATE [Suspect]
     Indication: DRUG USE FOR UNKNOWN INDICATION
     Dosage: 90 mg, 3x/day
     Route: 048
     Dates: start: 20111101, end: 20120825
  2. ZYVOXID [Suspect]
     Indication: DRUG USE FOR UNKNOWN INDICATION
     Dosage: 600 mg, UNK
     Route: 048
     Dates: start: 20111101, end: 20120101
  3. CYMBALTA [Suspect]
     Indication: DRUG USE FOR UNKNOWN INDICATION
     Dosage: 60 mg, Daily
     Route: 048
     Dates: start: 20100825, end: 20120825
  4. INEGY [Suspect]
     Indication: DRUG USE FOR UNKNOWN INDICATION
     Dosage: 10 mg, UNK
     Route: 048
     Dates: end: 20120828
  5. LIPANTHYL [Concomitant]
     Dosage: 200 mg, 1x/day
     Route: 048
     Dates: end: 20120828
  6. ASPIRIN [Concomitant]
     Dosage: 100 mg, 1x/day
     Route: 048
  7. ZOLPIDEM [Concomitant]
     Dosage: 10 mg, 1x/day
     Route: 048
     Dates: start: 20080101
  8. SALMETEROL [Concomitant]
     Dosage: 50 mg, 2x/day
     Route: 055
     Dates: start: 20080101
  9. SPIRIVA [Concomitant]
     Dosage: 18 ug, 1x/day
     Route: 055
     Dates: start: 20080101
  10. MYCOSTATIN [Concomitant]
     Dosage: 100000 IU, 1x/day
     Route: 048
     Dates: start: 20110901
  11. PANTOPRAZOL [Concomitant]
     Dosage: 20 mg, 1x/day
     Route: 048
     Dates: start: 20100901
  12. COMILORIDE [Concomitant]
     Dosage: 50 mg, 1x/day
     Route: 048

REACTIONS (4)
  - Polyneuropathy [Not Recovered/Not Resolved]
  - Condition aggravated [Not Recovered/Not Resolved]
  - Bronchopneumonia [Unknown]
  - Muscle atrophy [Unknown]
